FAERS Safety Report 7313183-0 (Version None)
Quarter: 2011Q1

REPORT INFORMATION
  Report Type: 
  Country: None (occurrence: None)
  Receive Date: 20110215
  Receipt Date: 20110215
  Transmission Date: 20110831
  Serious: Yes (Other)
  Sender: FDA-Public Use
  Company Number: None

PATIENT
  Age: 60 Year
  Sex: Female
  Weight: 113.3993 kg

DRUGS (1)
  1. MULTAQ [Suspect]
     Indication: ATRIAL FIBRILLATION
     Dosage: 400 MG. BID BY MOUTH
     Route: 048
     Dates: start: 20101101, end: 20110123

REACTIONS (3)
  - RASH GENERALISED [None]
  - PRURITUS [None]
  - SCRATCH [None]
